FAERS Safety Report 9640009 (Version 1)
Quarter: 2013Q4

REPORT INFORMATION
  Report Type: Spontaneous
  Country: MX (occurrence: MX)
  Receive Date: 20131023
  Receipt Date: 20131023
  Transmission Date: 20140711
  Serious: Yes (Other)
  Sender: FDA-Public Use
  Company Number: PHHY2013MX118094

PATIENT
  Age: 40 Year
  Sex: Female

DRUGS (2)
  1. ZELMAC [Suspect]
     Indication: COLITIS
     Dosage: UNK UKN, UNK
     Route: 048
     Dates: start: 2010
  2. CLONAZEPAM [Concomitant]
     Indication: PANIC ATTACK
     Dosage: 0.5 DF, PRN
     Route: 048
     Dates: start: 2012

REACTIONS (7)
  - Type 2 diabetes mellitus [Not Recovered/Not Resolved]
  - Weight decreased [Not Recovered/Not Resolved]
  - Blood glucose abnormal [Not Recovered/Not Resolved]
  - Glycosylated haemoglobin increased [Not Recovered/Not Resolved]
  - Crying [Recovered/Resolved]
  - Trigeminal neuralgia [Not Recovered/Not Resolved]
  - Colitis [Unknown]
